FAERS Safety Report 17840855 (Version 1)
Quarter: 2020Q2

REPORT INFORMATION
  Report Type: Report from Study
  Country: US (occurrence: US)
  Receive Date: 20200529
  Receipt Date: 20200529
  Transmission Date: 20200714
  Serious: Yes (Death)
  Sender: FDA-Public Use
  Company Number: US-OTSUKA-2020_013154

PATIENT
  Age: 78 Year
  Sex: Male
  Weight: 61.68 kg

DRUGS (2)
  1. TOLVAPTAN [Suspect]
     Active Substance: TOLVAPTAN
     Indication: HYPERTENSIVE HEART DISEASE
     Dosage: 15 MG, QD
     Route: 048
     Dates: start: 202005
  2. TOLVAPTAN [Suspect]
     Active Substance: TOLVAPTAN
     Indication: ATRIAL FIBRILLATION

REACTIONS (2)
  - Death [Fatal]
  - Product use in unapproved indication [Unknown]

NARRATIVE: CASE EVENT DATE: 202005
